FAERS Safety Report 21962308 (Version 1)
Quarter: 2023Q1

REPORT INFORMATION
  Report Type: Report from Study
  Country: US (occurrence: US)
  Receive Date: 20230207
  Receipt Date: 20230207
  Transmission Date: 20230417
  Serious: No
  Sender: FDA-Public Use
  Company Number: US-ORG100014127-2022000033

PATIENT
  Age: 39 Year
  Sex: Female

DRUGS (2)
  1. LYSODREN [Suspect]
     Active Substance: MITOTANE
     Indication: Adrenal gland cancer
     Route: 048
  2. LYSODREN [Suspect]
     Active Substance: MITOTANE
     Indication: Adrenal gland cancer
     Route: 048
     Dates: start: 20210928

REACTIONS (4)
  - Feeling abnormal [Not Recovered/Not Resolved]
  - Fatigue [Not Recovered/Not Resolved]
  - Nausea [Not Recovered/Not Resolved]
  - Vomiting [Not Recovered/Not Resolved]

NARRATIVE: CASE EVENT DATE: 20211001
